FAERS Safety Report 16096213 (Version 2)
Quarter: 2019Q2

REPORT INFORMATION
  Report Type: Spontaneous
  Country: US (occurrence: US)
  Receive Date: 20190320
  Receipt Date: 20190405
  Transmission Date: 20190711
  Serious: Yes (Hospitalization)
  Sender: FDA-Public Use
  Company Number: US-BAUSCH-BL-2019-008581

PATIENT
  Age: 23 Year
  Sex: Female
  Weight: 50.85 kg

DRUGS (1)
  1. PYRIDOSTIGMINE BROMIDE. [Suspect]
     Active Substance: PYRIDOSTIGMINE BROMIDE
     Indication: MYASTHENIA GRAVIS
     Dosage: STARTED ABOUT 8 YEARS AGO
     Route: 048

REACTIONS (2)
  - Drug intolerance [Recovered/Resolved]
  - Malaise [Recovered/Resolved]
